FAERS Safety Report 10236463 (Version 1)
Quarter: 2014Q2

REPORT INFORMATION
  Report Type: Other
  Country: GR (occurrence: GR)
  Receive Date: 20140613
  Receipt Date: 20140613
  Transmission Date: 20141212
  Serious: Yes (Hospitalization)
  Sender: FDA-Public Use
  Company Number: GR-BRISTOL-MYERS SQUIBB COMPANY-20977195

PATIENT
  Age: 52 Year
  Sex: Female

DRUGS (4)
  1. METFORMIN HCL [Suspect]
     Indication: DIABETES MELLITUS
     Route: 048
  2. PRAVASTATIN SODIUM [Suspect]
     Indication: HYPERLIPIDAEMIA
     Route: 048
  3. ROSIGLITAZONE [Suspect]
     Indication: DIABETES MELLITUS
     Route: 048
  4. LEVOTHYROXINE [Concomitant]
     Indication: HYPOTHYROIDISM
     Route: 048

REACTIONS (2)
  - Autoimmune pancreatitis [Recovering/Resolving]
  - Drug-induced liver injury [Recovering/Resolving]
